FAERS Safety Report 8590927 (Version 24)
Quarter: 2016Q2

REPORT INFORMATION
  Report Type: Spontaneous
  Country: US (occurrence: US)
  Receive Date: 20120601
  Receipt Date: 20160517
  Transmission Date: 20160815
  Serious: Yes (Hospitalization, Other)
  Sender: FDA-Public Use
  Company Number: US-GLAXOSMITHKLINE-A0979688A

PATIENT

DRUGS (24)
  1. FLOLAN [Suspect]
     Active Substance: EPOPROSTENOL SODIUM
     Dosage: 25.5 DF, CO
  2. FLOLAN [Suspect]
     Active Substance: EPOPROSTENOL SODIUM
     Dosage: 25.5 NG/KG/MIN
  3. FLOLAN [Suspect]
     Active Substance: EPOPROSTENOL SODIUM
     Dosage: 25 NG/KG/MIN, CO
     Dates: start: 19991101
  4. PRILOSEC [Concomitant]
     Active Substance: OMEPRAZOLE MAGNESIUM
  5. COMBIVENT [Concomitant]
     Active Substance: ALBUTEROL SULFATE\IPRATROPIUM BROMIDE
  6. FLOLAN [Suspect]
     Active Substance: EPOPROSTENOL SODIUM
     Indication: PULMONARY HYPERTENSION
     Dosage: UNK
     Dates: start: 19991001
  7. FLOLAN [Suspect]
     Active Substance: EPOPROSTENOL SODIUM
     Dosage: UNK
     Dates: start: 19991001
  8. LACTULOSE. [Concomitant]
     Active Substance: LACTULOSE
  9. FLOLAN [Suspect]
     Active Substance: EPOPROSTENOL SODIUM
     Dosage: UNK
     Dates: start: 19991001
  10. FLOLAN [Suspect]
     Active Substance: EPOPROSTENOL SODIUM
     Dosage: UNK
     Dates: start: 19991001
  11. FLOLAN [Suspect]
     Active Substance: EPOPROSTENOL SODIUM
     Dosage: UNK
  12. FLOLAN [Suspect]
     Active Substance: EPOPROSTENOL SODIUM
     Dosage: 25.5 NG/KG/MIN CONTINUOUS
     Route: 042
     Dates: start: 19991101
  13. LASIX [Concomitant]
     Active Substance: FUROSEMIDE
  14. FLOLAN [Suspect]
     Active Substance: EPOPROSTENOL SODIUM
     Dosage: 25.5 NG/KG/MIN CONTINUOUS
     Route: 042
  15. FLOLAN [Suspect]
     Active Substance: EPOPROSTENOL SODIUM
     Dosage: UNK
  16. FLOLAN [Suspect]
     Active Substance: EPOPROSTENOL SODIUM
     Dosage: UNK
  17. ADCIRCA [Suspect]
     Active Substance: TADALAFIL
     Indication: PRODUCT USED FOR UNKNOWN INDICATION
     Dosage: 20 MG, QD
  18. FLOLAN [Suspect]
     Active Substance: EPOPROSTENOL SODIUM
     Dosage: UNK
     Dates: start: 19991001
  19. FLOLAN [Suspect]
     Active Substance: EPOPROSTENOL SODIUM
     Dosage: 25.5 DF, CYC
     Dates: start: 19991101
  20. FLOLAN [Suspect]
     Active Substance: EPOPROSTENOL SODIUM
     Indication: PRODUCT USED FOR UNKNOWN INDICATION
     Dosage: UNKNOWN
     Route: 042
  21. REVATIO [Concomitant]
     Active Substance: SILDENAFIL CITRATE
  22. FLOLAN [Suspect]
     Active Substance: EPOPROSTENOL SODIUM
     Indication: PULMONARY ARTERIAL HYPERTENSION
     Dosage: 25.5 NG/KG/MIN CONTINUOUS
     Route: 042
     Dates: start: 19991001
  23. FLOLAN [Suspect]
     Active Substance: EPOPROSTENOL SODIUM
     Dosage: 25.5 NG/KG/MIN
  24. FLOLAN [Suspect]
     Active Substance: EPOPROSTENOL SODIUM
     Dosage: UNK

REACTIONS (20)
  - Application site pruritus [Unknown]
  - Epistaxis [Unknown]
  - Rash pruritic [Not Recovered/Not Resolved]
  - Application site perspiration [Unknown]
  - Catheter site rash [Not Recovered/Not Resolved]
  - Nerve compression [Unknown]
  - Protrusion tongue [Unknown]
  - Swollen tongue [Unknown]
  - Biopsy [Unknown]
  - Eye disorder [Not Recovered/Not Resolved]
  - Infusion site pain [Unknown]
  - Complication associated with device [Unknown]
  - Pain [Unknown]
  - Chest discomfort [Unknown]
  - Eye infection [Unknown]
  - Hospitalisation [Unknown]
  - Nasopharyngitis [Unknown]
  - Liver injury [Unknown]
  - Hypertension [Unknown]
  - Rash [Unknown]

NARRATIVE: CASE EVENT DATE: 201408
